FAERS Safety Report 6057176-2 (Version None)
Quarter: 2009Q1

REPORT INFORMATION
  Report Type: 
  Country: None (occurrence: None)
  Receive Date: 20090129
  Receipt Date: 20080128
  Transmission Date: 20090719
  Serious: No
  Sender: FDA-Public Use
  Company Number: A0706720A

PATIENT
  Sex: Male

DRUGS (2)
  1. WELLBUTRIN [Suspect]
     Route: 048
  2. UNKNOWN [Concomitant]

REACTIONS (16)
  - ADVERSE EVENT [None]
  - ANXIETY [None]
  - DISABILITY [None]
  - DISCOMFORT [None]
  - DYSPNOEA [None]
  - EYE SWELLING [None]
  - FEELING ABNORMAL [None]
  - LIP SWELLING [None]
  - OEDEMA PERIPHERAL [None]
  - PHARYNGEAL OEDEMA [None]
  - PRURITUS [None]
  - SKIN DISCOLOURATION [None]
  - SLEEP DISORDER [None]
  - SWELLING FACE [None]
  - SWOLLEN TONGUE [None]
  - URTICARIA [None]
